FAERS Safety Report 11826645 (Version 1)
Quarter: 2015Q4

REPORT INFORMATION
  Report Type: Spontaneous
  Country: CA (occurrence: CA)
  Receive Date: 20151211
  Receipt Date: 20151211
  Transmission Date: 20160305
  Serious: Yes (Life-Threatening, Hospitalization, Other)
  Sender: FDA-Public Use
  Company Number: CA-TEVA-617221ACC

PATIENT
  Age: 28 Year
  Sex: Male
  Weight: 108 kg

DRUGS (8)
  1. CLARITHROMYCIN. [Concomitant]
     Active Substance: CLARITHROMYCIN
  2. LAMOTRIGINE. [Suspect]
     Active Substance: LAMOTRIGINE
     Indication: DRUG WITHDRAWAL CONVULSIONS
     Dosage: 25 MILLIGRAM DAILY;
     Route: 048
  3. PULMICORT TURBUHALER [Concomitant]
     Active Substance: BUDESONIDE
  4. CHAMPIX [Concomitant]
     Active Substance: VARENICLINE TARTRATE
  5. SULFAMETHOXAZOLE AND TRIMETHOPRIM [Concomitant]
     Active Substance: SULFAMETHOXAZOLE\TRIMETHOPRIM
  6. VENTOLIN [Concomitant]
     Active Substance: ALBUTEROL SULFATE
  7. NAPROXEN. [Concomitant]
     Active Substance: NAPROXEN
  8. MULTIVITAMINE(S) [Concomitant]

REACTIONS (4)
  - Pulmonary embolism [Recovered/Resolved]
  - Respiratory failure [Recovered/Resolved]
  - Influenza like illness [Recovered/Resolved]
  - Interstitial lung disease [Recovered/Resolved]
